FAERS Safety Report 4600188-3 (Version None)
Quarter: 2005Q1

REPORT INFORMATION
  Report Type: 
  Country: None (occurrence: None)
  Receive Date: 20050303
  Receipt Date: 20050211
  Transmission Date: 20050727
  Serious: Yes (Hospitalization)
  Sender: FDA-Public Use
  Company Number: GBS050216574

PATIENT
  Age: 5 Year
  Sex: Male
  Weight: 24 kg

DRUGS (5)
  1. ATOMOXETINE HYDROCHLORIDE [Suspect]
     Indication: ATTENTION DEFICIT/HYPERACTIVITY DISORDER
     Dosage: 25 MG
  2. TOPAMAX [Concomitant]
  3. RISPERDAL [Concomitant]
  4. CLONAZEPAM [Concomitant]
  5. MELATONIN [Concomitant]

REACTIONS (3)
  - ABNORMAL BEHAVIOUR [None]
  - PSYCHOMOTOR HYPERACTIVITY [None]
  - STATUS EPILEPTICUS [None]
